FAERS Safety Report 7819340-9 (Version None)
Quarter: 2011Q4

REPORT INFORMATION
  Report Type: 
  Country: None (occurrence: None)
  Receive Date: 20111018
  Receipt Date: 20110624
  Transmission Date: 20120403
  Serious: No
  Sender: FDA-Public Use
  Company Number: US-ASTRAZENECA-2011SE22517

PATIENT
  Sex: Male

DRUGS (3)
  1. SYMBICORT [Suspect]
     Dosage: 160/4.5 MCG TWO TIMES A DAY
     Route: 055
     Dates: start: 20110413
  2. SYMBICORT [Suspect]
     Route: 055
  3. PROAIR HFA [Concomitant]

REACTIONS (3)
  - PNEUMONIA [None]
  - DEVICE MISUSE [None]
  - CIRCUMSTANCE OR INFORMATION CAPABLE OF LEADING TO MEDICATION ERROR [None]
